FAERS Safety Report 15198424 (Version 1)
Quarter: 2018Q3

REPORT INFORMATION
  Report Type: Report from Study
  Country: US (occurrence: US)
  Receive Date: 20180725
  Receipt Date: 20180725
  Transmission Date: 20181010
  Serious: No
  Sender: FDA-Public Use
  Company Number: US-AMGEN-USASL2018093128

PATIENT
  Age: 73 Year
  Sex: Female

DRUGS (1)
  1. REPATHA [Suspect]
     Active Substance: EVOLOCUMAB
     Indication: PRODUCT USED FOR UNKNOWN INDICATION
     Dosage: 140 MG, Q2WK
     Route: 065
     Dates: start: 20180506

REACTIONS (9)
  - Malaise [Unknown]
  - Sleep disorder [Unknown]
  - Heart rate increased [Unknown]
  - Diarrhoea [Unknown]
  - Respiratory disorder [Unknown]
  - Burning sensation [Unknown]
  - Pruritus [Unknown]
  - Mass [Unknown]
  - Cough [Unknown]

NARRATIVE: CASE EVENT DATE: 20180628
